FAERS Safety Report 4665662-2 (Version None)
Quarter: 2005Q2

REPORT INFORMATION
  Report Type: 
  Country: None (occurrence: None)
  Receive Date: 20050518
  Receipt Date: 20050518
  Transmission Date: 20051028
  Serious: Yes (Hospitalization)
  Sender: FDA-Public Use
  Company Number: None

PATIENT
  Age: 71 Year
  Sex: Female

DRUGS (2)
  1. CARBOPLATIN [Suspect]
     Indication: SMALL CELL LUNG CANCER STAGE UNSPECIFIED
     Dosage: AUC 5  Q 3 WEEKS  INTRAVENOUS
     Route: 042
     Dates: start: 20031219, end: 20040213
  2. CPT 11 [Suspect]
     Dosage: 55 MG/M2  DAYS 1 + 8 INTRAVENOUS
     Route: 042
     Dates: start: 20031219, end: 20040213

REACTIONS (7)
  - DRUG TOXICITY [None]
  - INCORRECT DRUG DOSAGE FORM ADMINISTERED [None]
  - NAUSEA [None]
  - PANCYTOPENIA [None]
  - PERFORMANCE STATUS DECREASED [None]
  - VOMITING [None]
  - WEIGHT DECREASED [None]
